FAERS Safety Report 20169376 (Version 1)
Quarter: 2021Q4

REPORT INFORMATION
  Report Type: Report from Study
  Country: BE (occurrence: BE)
  Receive Date: 20211210
  Receipt Date: 20211210
  Transmission Date: 20220303
  Serious: Yes (Hospitalization)
  Sender: FDA-Public Use
  Company Number: BE-CHILTERN-QED-2020-000056

PATIENT
  Age: 71 Year
  Sex: Male
  Weight: 88.5 kg

DRUGS (11)
  1. BISOPROLOL [Concomitant]
     Active Substance: BISOPROLOL
     Indication: Hypertension
     Dosage: 10 MILLIGRAM, QD
     Route: 048
     Dates: start: 2010
  2. ELIQUIS [Concomitant]
     Active Substance: APIXABAN
     Indication: Pulmonary embolism
     Dosage: 5 MILLIGRAM, BID
     Route: 048
     Dates: start: 20200205
  3. INFIGRATINIB [Suspect]
     Active Substance: INFIGRATINIB
     Indication: Cholangiocarcinoma
     Dosage: 125 MILLIGRAM/DAY
     Route: 048
     Dates: start: 20200731, end: 20200806
  4. INFIGRATINIB [Suspect]
     Active Substance: INFIGRATINIB
     Indication: Cholangiocarcinoma
     Dosage: 125 MILLIGRAM/DAY
     Route: 048
     Dates: start: 20200814, end: 20200821
  5. INFIGRATINIB [Suspect]
     Active Substance: INFIGRATINIB
     Dosage: 125 MILLIGRAM/DAY
     Route: 048
     Dates: start: 20200828, end: 20200917
  6. INFIGRATINIB [Suspect]
     Active Substance: INFIGRATINIB
     Dosage: 125 MILLIGRAM/DAY
     Route: 048
     Dates: start: 20200926, end: 20201016
  7. INFIGRATINIB [Suspect]
     Active Substance: INFIGRATINIB
     Dosage: 100 MILLIGRAM, QD
     Route: 048
     Dates: start: 20201128, end: 20201218
  8. INFIGRATINIB [Suspect]
     Active Substance: INFIGRATINIB
     Dosage: 100 MILLIGRAM, QD
     Route: 048
     Dates: start: 20201226, end: 20210115
  9. INFIGRATINIB [Suspect]
     Active Substance: INFIGRATINIB
     Dosage: 100 MILLIGRAM, QD
     Route: 048
     Dates: start: 20210123, end: 20210212
  10. INFIGRATINIB [Suspect]
     Active Substance: INFIGRATINIB
     Dosage: 100 MILLIGRAM, QD
     Route: 048
     Dates: start: 20210220, end: 20210312
  11. INFIGRATINIB [Suspect]
     Active Substance: INFIGRATINIB
     Dosage: 100 MILLIGRAM, QD
     Route: 048
     Dates: start: 20210320, end: 20210409

REACTIONS (3)
  - Stomatitis [Recovered/Resolved]
  - Hypokalaemia [Recovering/Resolving]
  - COVID-19 [Recovered/Resolved]

NARRATIVE: CASE EVENT DATE: 20201016
